FAERS Safety Report 14769522 (Version 1)
Quarter: 2018Q2

REPORT INFORMATION
  Report Type: Spontaneous
  Country: DE (occurrence: DE)
  Receive Date: 20180417
  Receipt Date: 20180417
  Transmission Date: 20180711
  Serious: Yes (Hospitalization)
  Sender: FDA-Public Use
  Company Number: DE-SA-2018SA109446

PATIENT
  Age: 67 Year
  Sex: Male
  Weight: 80 kg

DRUGS (7)
  1. ACETYLSALICYLIC ACID [Suspect]
     Active Substance: ASPIRIN
     Dosage: 1-0-0-0
     Route: 048
  2. INSULIN GLARGINE [Suspect]
     Active Substance: INSULIN GLARGINE
     Dosage: NACH BZ
     Route: 058
  3. SITAGLIPTIN [Suspect]
     Active Substance: SITAGLIPTIN
     Dosage: 0-0-1-0
     Route: 065
  4. ATORVASTATIN [Concomitant]
     Active Substance: ATORVASTATIN
     Route: 048
  5. METOPROLOL. [Concomitant]
     Active Substance: METOPROLOL
     Route: 048
  6. ALLOPURINOL. [Concomitant]
     Active Substance: ALLOPURINOL
     Route: 048
  7. LEVOTHYROXINE. [Concomitant]
     Active Substance: LEVOTHYROXINE
     Route: 048

REACTIONS (2)
  - Abdominal pain lower [Unknown]
  - Abdominal pain upper [Unknown]
